FAERS Safety Report 11307695 (Version 1)
Quarter: 2015Q3

REPORT INFORMATION
  Report Type: Report from Study
  Country: IT (occurrence: IT)
  Receive Date: 20150724
  Receipt Date: 20150724
  Transmission Date: 20151125
  Serious: Yes (Hospitalization, Other)
  Sender: FDA-Public Use
  Company Number: IT-BRISTOL-MYERS SQUIBB COMPANY-BMS-2015-034626

PATIENT
  Sex: Male

DRUGS (3)
  1. DASATINIB [Suspect]
     Active Substance: DASATINIB
     Indication: PERIPHERAL T-CELL LYMPHOMA UNSPECIFIED
     Dosage: UNK
     Route: 065
     Dates: end: 20150304
  2. DASATINIB [Suspect]
     Active Substance: DASATINIB
     Dosage: 30 MG, UNK
     Route: 065
     Dates: start: 20150430, end: 20150523
  3. DASATINIB [Suspect]
     Active Substance: DASATINIB
     Dosage: 80 MG, UNK
     Route: 065

REACTIONS (4)
  - Vocal cord neoplasm [Unknown]
  - Neutropenia [Recovering/Resolving]
  - Pneumonia [Recovering/Resolving]
  - Hyperpyrexia [Unknown]
